FAERS Safety Report 4962537-6 (Version None)
Quarter: 2006Q1

REPORT INFORMATION
  Report Type: 
  Country: None (occurrence: None)
  Receive Date: 20060201
  Receipt Date: 20051104
  Transmission Date: 20060701
  Serious: No
  Sender: FDA-Public Use
  Company Number: 2005PV004491

PATIENT
  Age: 51 Year
  Sex: Female
  Weight: 126.1 kg

DRUGS (7)
  1. BYETTA [Suspect]
     Indication: DIABETES MELLITUS NON-INSULIN-DEPENDENT
     Dosage: 10MCG;BID;SC, 5 MCG;BID
     Route: 058
     Dates: start: 20050919, end: 20050101
  2. BYETTA [Suspect]
     Indication: DIABETES MELLITUS NON-INSULIN-DEPENDENT
     Dosage: 10MCG;BID;SC, 5 MCG;BID
     Route: 058
     Dates: start: 20051019
  3. METAGLIP [Concomitant]
  4. LOTREL [Concomitant]
  5. DIOVAN [Concomitant]
  6. ADDERALL 10 [Concomitant]
  7. ALLERGY MEDICATION [Concomitant]

REACTIONS (4)
  - CRYING [None]
  - EMOTIONAL DISTRESS [None]
  - STRESS [None]
  - STRESS AT WORK [None]
